FAERS Safety Report 5371653-9 (Version None)
Quarter: 2007Q2

REPORT INFORMATION
  Report Type: 
  Country: None (occurrence: None)
  Receive Date: 20070627
  Receipt Date: 20070615
  Transmission Date: 20071010
  Serious: Yes (Other)
  Sender: FDA-Public Use
  Company Number: PHFR2006GB03765

PATIENT
  Age: 26 Year
  Sex: Female

DRUGS (1)
  1. CLOZARIL [Suspect]
     Indication: SCHIZOPHRENIA
     Dosage: 100MG MANE / 300MG NOCTE
     Route: 048
     Dates: start: 20000606

REACTIONS (7)
  - CHEST DISCOMFORT [None]
  - HALLUCINATION, VISUAL [None]
  - OCULOGYRATION [None]
  - PANIC ATTACK [None]
  - PSYCHIATRIC SYMPTOM [None]
  - SALIVARY HYPERSECRETION [None]
  - SELF ESTEEM DECREASED [None]
